FAERS Safety Report 14970065 (Version 1)
Quarter: 2018Q2

REPORT INFORMATION
  Report Type: Spontaneous
  Country: DE (occurrence: DE)
  Receive Date: 20180604
  Receipt Date: 20180604
  Transmission Date: 20180711
  Serious: Yes (Hospitalization, Other)
  Sender: FDA-Public Use
  Company Number: DE-TEVA-2018-DE-899829

PATIENT
  Age: 83 Year
  Sex: Male

DRUGS (2)
  1. SUMATRIPTAN-RATIOPHARM 100 MG FILMTABLETTEN [Suspect]
     Active Substance: SUMATRIPTAN SUCCINATE
     Indication: MIGRAINE
     Dosage: TAKEN TWO TIMES, ONE TABLET EACH TIME
     Route: 048
  2. DICLOFENAC-RATIOPHARM 25 MG [Concomitant]

REACTIONS (3)
  - Cardiac arrest [Recovered/Resolved with Sequelae]
  - Drug administered to patient of inappropriate age [Unknown]
  - Intentional product misuse [Unknown]
